FAERS Safety Report 8169606-0 (Version None)
Quarter: 2012Q1

REPORT INFORMATION
  Report Type: 
  Country: None (occurrence: None)
  Receive Date: 20120228
  Receipt Date: 20120221
  Transmission Date: 20120608
  Serious: Yes (Other)
  Sender: FDA-Public Use
  Company Number: US-BAYER-201014072NA

PATIENT
  Age: 23 Year
  Sex: Female
  Weight: 55 kg

DRUGS (42)
  1. EXCEDRIN [ACETYLSALICYLIC ACID,CAFFEINE,SALICYLAMIDE] [Concomitant]
     Dosage: SPORADICALLY
  2. TRAMADOL HCL [Concomitant]
     Dates: start: 20060801
  3. DOXYCYCLINE [Concomitant]
     Dates: start: 20061001
  4. TRETINOIN [Concomitant]
     Dates: start: 20060601
  5. LAMICTAL [Concomitant]
  6. LOESTRIN 1.5/30 [Concomitant]
     Dates: start: 20080901
  7. BUPROPION HCL [Concomitant]
     Dates: start: 20090301
  8. OXYCODONE HCL AND ACETAMINOPHEN [Concomitant]
     Dates: start: 20090601
  9. LEVAQUIN [Concomitant]
     Dates: start: 20080201
  10. DOXYCYCLINE [Concomitant]
     Dosage: UNK
     Dates: start: 20081201
  11. POTASSIUM CHLORIDE [Concomitant]
     Dates: start: 20070101
  12. SERTRALINE HYDROCHLORIDE [Concomitant]
     Dates: start: 20080101
  13. LOESTRIN 1.5/30 [Concomitant]
     Dates: start: 20081101
  14. DRYSOL [Concomitant]
     Dates: start: 20080401
  15. DOXYCYCLINE [Concomitant]
     Dosage: UNK
     Dates: start: 20100101
  16. ACCUTANE [Concomitant]
  17. METOCLOPRAMIDE [Concomitant]
     Dates: start: 20061201
  18. POTASSIUM CHLORIDE [Concomitant]
     Dates: start: 20070101
  19. YASMIN [Suspect]
     Dosage: UNK
     Route: 048
     Dates: start: 20040101, end: 20060101
  20. ONDANSETRON [Concomitant]
     Dates: start: 20080201
  21. LOESTRIN 1.5/30 [Concomitant]
  22. ZOFRAN [Concomitant]
     Dates: start: 20061201
  23. PROMETHAZINE [Concomitant]
     Dates: start: 20061201
  24. OXYCODONE HCL [Concomitant]
     Dates: start: 20060601
  25. METHYLPREDNISOLONE [Concomitant]
     Dates: start: 20090601
  26. BUPROPION HCL [Concomitant]
     Dates: start: 20090301
  27. CLINDAMYCIN [Concomitant]
     Dosage: UNK
     Dates: start: 20081001
  28. IBUPROFEN [Concomitant]
     Dates: start: 20061201
  29. DOXYCYCLINE [Concomitant]
     Dosage: UNK
     Dates: start: 20060101
  30. DOXYCYCLINE [Concomitant]
     Dosage: UNK
     Dates: start: 20081001
  31. ADDERALL 5 [Concomitant]
  32. BIAXIN [Concomitant]
     Dates: start: 20080101
  33. BACTRIM DS [Concomitant]
     Dates: start: 20090101
  34. SULFAMETHOXAZOLE AND TRIMETHOPRIM [Concomitant]
     Dates: start: 20060601
  35. CLINDAMYCIN [Concomitant]
     Dates: start: 20090601
  36. ALPRAZOLAM [Concomitant]
     Dates: start: 20090601
  37. YAZ [Suspect]
     Dosage: UNK
     Route: 048
     Dates: start: 20070101, end: 20090101
  38. KINEVAC [Concomitant]
     Dosage: HEPATOBILIARY SCAN
     Dates: start: 20091007, end: 20091007
  39. OXYCODONE HCL [Concomitant]
     Dosage: UNK
     Dates: start: 20080201
  40. ALPRAZOLAM [Concomitant]
     Dates: start: 20090601
  41. DOXYCYCLINE [Concomitant]
     Dates: start: 20090101
  42. ORTHO TRI-CYCLEN [Concomitant]

REACTIONS (4)
  - CHOLECYSTITIS CHRONIC [None]
  - GALLBLADDER DISORDER [None]
  - ABDOMINAL DISCOMFORT [None]
  - NAUSEA [None]
